FAERS Safety Report 16973556 (Version 1)
Quarter: 2019Q4

REPORT INFORMATION
  Report Type: Report from Study
  Country: IT (occurrence: IT)
  Receive Date: 20191030
  Receipt Date: 20191030
  Transmission Date: 20200122
  Serious: Yes (Death, Hospitalization)
  Sender: FDA-Public Use
  Company Number: IT-UCBSA-2019017076

PATIENT
  Sex: Female

DRUGS (2)
  1. ROTIGOTINE RLS [Suspect]
     Active Substance: ROTIGOTINE
     Dosage: 6 MG
  2. ROTIGOTINE RLS [Suspect]
     Active Substance: ROTIGOTINE
     Indication: RESTLESS LEGS SYNDROME
     Dosage: USED TO SPLIT NEUPRO 4 MG PATCHES INTO TWO HALVES
     Dates: start: 2019

REACTIONS (3)
  - Unevaluable event [Fatal]
  - Pneumonitis [Fatal]
  - Intentional product misuse [Unknown]

NARRATIVE: CASE EVENT DATE: 2019
